FAERS Safety Report 4482247-1 (Version None)
Quarter: 2004Q4

REPORT INFORMATION
  Report Type: 
  Country: None (occurrence: None)
  Receive Date: 20041020
  Receipt Date: 20041005
  Transmission Date: 20050328
  Serious: Yes (Hospitalization)
  Sender: FDA-Public Use
  Company Number: FR_041004948

PATIENT
  Age: 75 Year
  Sex: Male

DRUGS (6)
  1. CEFACLOR [Suspect]
     Indication: UPPER RESPIRATORY TRACT INFECTION
     Dosage: 500 MG/2 DAY
     Dates: start: 20040201, end: 20040208
  2. ALDACTONE [Concomitant]
  3. FUROSMIDE (FUROSEMIDE) [Concomitant]
  4. MUCOMYST (ACETYLCYSTEINE SODIUM) [Concomitant]
  5. CELEBREX [Concomitant]
  6. ACETAMINOPHEN W/ PROPOXYPHENE HCL [Concomitant]

REACTIONS (7)
  - BLOOD IMMUNOGLOBULIN E INCREASED [None]
  - DRUG INEFFECTIVE [None]
  - EOSINOPHIL COUNT INCREASED [None]
  - ERYTHEMA [None]
  - OEDEMA [None]
  - PRURITUS [None]
  - SKIN LESION [None]
